FAERS Safety Report 16821534 (Version 1)
Quarter: 2019Q3

REPORT INFORMATION
  Report Type: Spontaneous
  Country: CA (occurrence: CA)
  Receive Date: 20190918
  Receipt Date: 20190918
  Transmission Date: 20191005
  Serious: Yes (Life-Threatening, Other)
  Sender: FDA-Public Use
  Company Number: CA-PFIZER INC-2019402182

PATIENT
  Age: 53 Year
  Sex: Female

DRUGS (18)
  1. SENOKOT [Concomitant]
     Active Substance: SENNOSIDES
     Dosage: UNK
  2. VITAMIN E [Concomitant]
     Active Substance: .ALPHA.-TOCOPHEROL
     Dosage: UNK
  3. ETIDROCAL [Concomitant]
     Dosage: UNK
  4. METRONIDAZOLE. [Concomitant]
     Active Substance: METRONIDAZOLE
     Dosage: UNK
  5. CIPROFLOXACIN. [Suspect]
     Active Substance: CIPROFLOXACIN
     Indication: PNEUMONIA
     Dosage: 400 MG, 2X/DAY (EVERY 12 HOURS)
     Route: 042
  6. CALCIUM/MAGNESIUM [Concomitant]
     Dosage: UNK
  7. TIZANIDINE. [Concomitant]
     Active Substance: TIZANIDINE
     Dosage: UNK
  8. VITAMIN C [Concomitant]
     Active Substance: ASCORBIC ACID
     Dosage: UNK
  9. VITAMIN D [COLECALCIFEROL] [Concomitant]
     Active Substance: CHOLECALCIFEROL
     Dosage: UNK
  10. DOCUSATE [Concomitant]
     Active Substance: DOCUSATE
     Dosage: UNK
  11. METAMUCIL [Concomitant]
     Active Substance: PLANTAGO SEED
     Dosage: UNK
  12. MULTIVITAMINS [ASCORBIC ACID;ERGOCALCIFEROL;FOLIC ACID;NICOTINAMIDE;PA [Concomitant]
     Active Substance: VITAMINS
     Dosage: UNK
  13. OXYBUTYNIN. [Concomitant]
     Active Substance: OXYBUTYNIN CHLORIDE
     Dosage: UNK
  14. AMINO COMPLEX [Concomitant]
     Dosage: UNK
  15. CRANBERRY. [Concomitant]
     Active Substance: CRANBERRY
     Dosage: UNK
  16. EVENING PRIMROSE OIL [OENOTHERA BIENNIS OIL] [Concomitant]
     Dosage: UNK
  17. SELENIUM [Concomitant]
     Active Substance: SELENIUM
     Dosage: UNK
  18. VITAMIN B COMPLEX [Concomitant]
     Active Substance: CYANOCOBALAMIN\DEXPANTHENOL\NIACINAMIDE\PYRIDOXINE HYDROCHLORIDE\RIBOFLAVIN 5^-PHOSPHATE SODIUM\THIAMINE HYDROCHLORIDE\VITAMIN B COMPLEX
     Dosage: UNK

REACTIONS (5)
  - Skin warm [Recovered/Resolved]
  - Respiratory tract oedema [Recovered/Resolved]
  - Tachycardia [Recovered/Resolved]
  - Dermatitis exfoliative generalised [Recovered/Resolved]
  - Stridor [Recovered/Resolved]
